FAERS Safety Report 10070991 (Version 2)
Quarter: 2014Q2

REPORT INFORMATION
  Report Type: Spontaneous
  Country: FI (occurrence: FI)
  Receive Date: 20140410
  Receipt Date: 20140515
  Transmission Date: 20141212
  Serious: Yes (Hospitalization)
  Sender: FDA-Public Use
  Company Number: FI-GLAXOSMITHKLINE-B0984486A

PATIENT
  Age: 51 Year
  Sex: Male

DRUGS (2)
  1. REVOLADE [Suspect]
     Indication: IMMUNE THROMBOCYTOPENIC PURPURA
     Dosage: 25MG PER DAY
     Route: 065
  2. CORTISONE [Concomitant]

REACTIONS (2)
  - Autoimmune haemolytic anaemia [Recovering/Resolving]
  - Infection [Recovering/Resolving]
